FAERS Safety Report 7954189-8 (Version None)
Quarter: 2011Q4

REPORT INFORMATION
  Report Type: 
  Country: None (occurrence: None)
  Receive Date: 20111202
  Receipt Date: 20111121
  Transmission Date: 20120403
  Serious: Yes (Hospitalization)
  Sender: FDA-Public Use
  Company Number: US-CUBIST-2011S1000816

PATIENT
  Age: 47 Year
  Sex: Female

DRUGS (8)
  1. VALTREX [Concomitant]
     Indication: PRODUCT USED FOR UNKNOWN INDICATION
  2. ERTAPENEM [Suspect]
     Indication: PROPHYLAXIS
     Route: 042
     Dates: start: 20110915
  3. NORCO [Concomitant]
     Indication: PRODUCT USED FOR UNKNOWN INDICATION
  4. COUMADIN [Concomitant]
     Indication: PRODUCT USED FOR UNKNOWN INDICATION
  5. KLONOPIN [Concomitant]
  6. CUBICIN [Suspect]
     Indication: PROPHYLAXIS
     Route: 042
     Dates: start: 20110915
  7. ALL OTHER THERAPEUTIC PRODUCTS [Suspect]
     Indication: BREAST CANCER METASTATIC
     Route: 042
     Dates: start: 20100318, end: 20111024
  8. PRILOSEC [Concomitant]
     Indication: PRODUCT USED FOR UNKNOWN INDICATION

REACTIONS (1)
  - ENTEROCOLITIS [None]
